FAERS Safety Report 17505403 (Version 3)
Quarter: 2025Q3

REPORT INFORMATION
  Report Type: Spontaneous
  Country: EU (occurrence: EU)
  Receive Date: 20200305
  Receipt Date: 20250923
  Transmission Date: 20251021
  Serious: Yes (Hospitalization)
  Sender: MYLAN
  Company Number: None

PATIENT
  Age: 78 Year
  Sex: Male

DRUGS (24)
  1. TELMISARTAN [Suspect]
     Active Substance: TELMISARTAN
     Indication: Hypertension
     Dosage: 80 MILLIGRAM, QD
     Dates: end: 20200111
  2. TELMISARTAN [Suspect]
     Active Substance: TELMISARTAN
     Dosage: 80 MILLIGRAM, QD
     Route: 048
     Dates: end: 20200111
  3. TELMISARTAN [Suspect]
     Active Substance: TELMISARTAN
     Dosage: 80 MILLIGRAM, QD
     Route: 048
     Dates: end: 20200111
  4. TELMISARTAN [Suspect]
     Active Substance: TELMISARTAN
     Dosage: 80 MILLIGRAM, QD
     Dates: end: 20200111
  5. ESOMEPRAZOLE [Suspect]
     Active Substance: ESOMEPRAZOLE
     Indication: Product used for unknown indication
     Dosage: 20 MILLIGRAM, QD
     Dates: end: 20200111
  6. ESOMEPRAZOLE [Suspect]
     Active Substance: ESOMEPRAZOLE
     Dosage: 20 MILLIGRAM, QD
     Route: 048
     Dates: end: 20200111
  7. ESOMEPRAZOLE [Suspect]
     Active Substance: ESOMEPRAZOLE
     Dosage: 20 MILLIGRAM, QD
     Route: 048
     Dates: end: 20200111
  8. ESOMEPRAZOLE [Suspect]
     Active Substance: ESOMEPRAZOLE
     Dosage: 20 MILLIGRAM, QD
     Dates: end: 20200111
  9. PHENOBARBITAL [Suspect]
     Active Substance: PHENOBARBITAL
     Indication: Epilepsy
     Dosage: 50 MILLIGRAM, QD
  10. PHENOBARBITAL [Suspect]
     Active Substance: PHENOBARBITAL
     Dosage: 50 MILLIGRAM, QD
     Route: 048
  11. PHENOBARBITAL [Suspect]
     Active Substance: PHENOBARBITAL
     Dosage: 50 MILLIGRAM, QD
     Route: 048
  12. PHENOBARBITAL [Suspect]
     Active Substance: PHENOBARBITAL
     Dosage: 50 MILLIGRAM, QD
  13. MYSOLINE [Suspect]
     Active Substance: PRIMIDONE
     Indication: Epilepsy
     Dosage: 250 MILLIGRAM, QD
  14. MYSOLINE [Suspect]
     Active Substance: PRIMIDONE
     Dosage: 250 MILLIGRAM, QD
     Route: 048
  15. MYSOLINE [Suspect]
     Active Substance: PRIMIDONE
     Dosage: 250 MILLIGRAM, QD
     Route: 048
  16. MYSOLINE [Suspect]
     Active Substance: PRIMIDONE
     Dosage: 250 MILLIGRAM, QD
  17. TEGRETOL [Suspect]
     Active Substance: CARBAMAZEPINE
     Indication: Epilepsy
     Dosage: 400 MILLIGRAM, QD
     Route: 065
  18. TEGRETOL [Suspect]
     Active Substance: CARBAMAZEPINE
     Dosage: 400 MILLIGRAM, QD
  19. TEGRETOL [Suspect]
     Active Substance: CARBAMAZEPINE
     Dosage: 400 MILLIGRAM, QD
  20. TEGRETOL [Suspect]
     Active Substance: CARBAMAZEPINE
     Dosage: 400 MILLIGRAM, QD
     Route: 065
  21. TEGRETOL [Suspect]
     Active Substance: CARBAMAZEPINE
     Route: 048
  22. TEGRETOL [Suspect]
     Active Substance: CARBAMAZEPINE
  23. TEGRETOL [Suspect]
     Active Substance: CARBAMAZEPINE
  24. TEGRETOL [Suspect]
     Active Substance: CARBAMAZEPINE
     Route: 048

REACTIONS (1)
  - Hyponatraemia [Recovering/Resolving]

NARRATIVE: CASE EVENT DATE: 20200111
